FAERS Safety Report 14115117 (Version 2)
Quarter: 2018Q3

REPORT INFORMATION
  Report Type: Spontaneous
  Country: AR (occurrence: AR)
  Receive Date: 20171023
  Receipt Date: 20180829
  Transmission Date: 20181010
  Serious: Yes (Hospitalization, Other)
  Sender: FDA-Public Use
  Company Number: AR-PFIZER INC-2017454344

PATIENT
  Age: 64 Year
  Sex: Female

DRUGS (6)
  1. XELJANZ [Suspect]
     Active Substance: TOFACITINIB CITRATE
     Indication: RHEUMATOID ARTHRITIS
     Dosage: 5 MG, 2X/DAY
     Dates: start: 20160605
  2. TROKEN [Concomitant]
     Indication: ARTERIAL DISORDER
  3. LOTRIAL [ENALAPRILAT] [Concomitant]
     Indication: BLOOD PRESSURE ABNORMAL
  4. PREGABALINA [Concomitant]
     Active Substance: PREGABALIN
  5. PANTOPRAZOL [PANTOPRAZOLE] [Concomitant]
     Indication: GASTRITIS
     Dosage: UNK UNK, DAILY (IN THE MORNING)
  6. ATLANSIL [AMIODARONE] [Concomitant]
     Indication: ARRHYTHMIA
     Dosage: UNK

REACTIONS (1)
  - Postoperative wound infection [Recovered/Resolved]

NARRATIVE: CASE EVENT DATE: 20171001
